FAERS Safety Report 7009168-4 (Version None)
Quarter: 2010Q3

REPORT INFORMATION
  Report Type: 
  Country: None (occurrence: None)
  Receive Date: 20100921
  Receipt Date: 20100909
  Transmission Date: 20110219
  Serious: Yes (Other)
  Sender: FDA-Public Use
  Company Number: DKLU1064925

PATIENT
  Age: 3 Year
  Sex: Female

DRUGS (4)
  1. SABRIL [Suspect]
     Indication: INFANTILE SPASMS
     Dosage: ORAL, 2 IN 1 D, ORAL,  500 MG MILLIGRAM(S), 2 IN 1 D, ORAL 750 MG MILLIGRAM(S), 2 IN 1 D, ORAL
     Route: 048
     Dates: start: 20100101, end: 20100101
  2. SABRIL [Suspect]
     Indication: INFANTILE SPASMS
     Dosage: ORAL, 2 IN 1 D, ORAL,  500 MG MILLIGRAM(S), 2 IN 1 D, ORAL 750 MG MILLIGRAM(S), 2 IN 1 D, ORAL
     Route: 048
     Dates: start: 20100614, end: 20100101
  3. ZONISAMIDE [Concomitant]
  4. KEPPRA [Concomitant]

REACTIONS (1)
  - GRAND MAL CONVULSION [None]
